FAERS Safety Report 5268078-3 (Version None)
Quarter: 2007Q1

REPORT INFORMATION
  Report Type: 
  Country: None (occurrence: None)
  Receive Date: 20070319
  Receipt Date: 20070309
  Transmission Date: 20070707
  Serious: Yes (Hospitalization)
  Sender: FDA-Public Use
  Company Number: PT-ELI_LILLY_AND_COMPANY-PT200609005304

PATIENT
  Age: 70 Year
  Sex: Female

DRUGS (5)
  1. OLANZAPINE [Suspect]
     Indication: MAJOR DEPRESSION
     Dosage: 5 MG, DAILY (1/D)
     Route: 048
     Dates: start: 20060919, end: 20060921
  2. DILTIAZEM [Concomitant]
     Dosage: 120 MG, DAILY (1/D)
  3. METFORMIN [Concomitant]
     Dosage: 1700 MG, DAILY (1/D)
     Dates: start: 20040101
  4. LORAZEPAM [Concomitant]
     Dates: end: 20060918
  5. CLOMIPRAMINE HCL [Concomitant]
     Dosage: 150 MG, DAILY (1/D)
     Dates: start: 20060816, end: 20060918

REACTIONS (2)
  - PETECHIAE [None]
  - PLATELET COUNT DECREASED [None]
